FAERS Safety Report 5558497-X (Version None)
Quarter: 2007Q4

REPORT INFORMATION
  Report Type: 
  Country: None (occurrence: None)
  Receive Date: 20071214
  Receipt Date: 20071204
  Transmission Date: 20080405
  Serious: Yes (Other)
  Sender: FDA-Public Use
  Company Number: US-PFIZER INC-2007102465

PATIENT
  Sex: Female
  Weight: 71.2 kg

DRUGS (4)
  1. LYRICA [Suspect]
     Indication: RESTLESS LEGS SYNDROME
  2. TORSEMIDE [Concomitant]
  3. ANTITHYROID PREPARATIONS [Concomitant]
  4. ENDURON [Concomitant]

REACTIONS (5)
  - DYSSTASIA [None]
  - FEELING ABNORMAL [None]
  - FEELING OF RELAXATION [None]
  - LETHARGY [None]
  - VISION BLURRED [None]
